FAERS Safety Report 4454054-7 (Version None)
Quarter: 2004Q3

REPORT INFORMATION
  Report Type: 
  Country: None (occurrence: None)
  Receive Date: 20040902
  Receipt Date: 20420709
  Transmission Date: 20050211
  Serious: No
  Sender: FDA-Public Use
  Company Number: 00419111BWH

PATIENT
  Sex: Male

DRUGS (4)
  1. LEVITRA [Suspect]
     Indication: ERECTILE DYSFUNCTION
     Dosage: 10 MG, PRN, ORAL
     Route: 048
     Dates: start: 20040610
  2. LEVITRA [Suspect]
     Dosage: 20 MG, PRN, ORAL
     Route: 048
  3. ZOCOR [Concomitant]
  4. CAVERJECT [Concomitant]

REACTIONS (1)
  - ERECTILE DYSFUNCTION [None]
